FAERS Safety Report 8093300-8 (Version None)
Quarter: 2012Q1

REPORT INFORMATION
  Report Type: 
  Country: None (occurrence: None)
  Receive Date: 20120128
  Receipt Date: 20110913
  Transmission Date: 20120608
  Serious: No
  Sender: FDA-Public Use
  Company Number: US-ABBOTT-11P-163-0841627-00

PATIENT
  Sex: Female
  Weight: 104.42 kg

DRUGS (4)
  1. DICLOFENAC [Concomitant]
     Indication: RHEUMATOID ARTHRITIS
  2. FENOFIBRATE [Concomitant]
     Indication: BLOOD TRIGLYCERIDES INCREASED
  3. HUMIRA [Suspect]
     Dates: start: 20110825
  4. HUMIRA [Suspect]
     Indication: RHEUMATOID ARTHRITIS
     Route: 058
     Dates: start: 20110601, end: 20110728

REACTIONS (23)
  - PAIN [None]
  - RESPIRATORY TRACT CONGESTION [None]
  - GASTRITIS [None]
  - BLOOD PRESSURE INCREASED [None]
  - VIRAL INFECTION [None]
  - FALL [None]
  - DYSPNOEA [None]
  - FATIGUE [None]
  - NAUSEA [None]
  - FEELING COLD [None]
  - DIARRHOEA [None]
  - DIZZINESS [None]
  - VOMITING [None]
  - MUSCULOSKELETAL STIFFNESS [None]
  - CHILLS [None]
  - PYREXIA [None]
  - LOSS OF CONSCIOUSNESS [None]
  - COUGH [None]
  - HOT FLUSH [None]
  - DYSGEUSIA [None]
  - INFLUENZA [None]
  - BRONCHITIS [None]
  - MULTIPLE FRACTURES [None]
